FAERS Safety Report 6092819-9 (Version None)
Quarter: 2009Q1

REPORT INFORMATION
  Report Type: 
  Country: None (occurrence: None)
  Receive Date: 20090225
  Receipt Date: 20090213
  Transmission Date: 20090719
  Serious: Yes (Life-Threatening, Hospitalization, Other)
  Sender: FDA-Public Use
  Company Number: AU-ELI_LILLY_AND_COMPANY-AU200902001897

PATIENT
  Age: 36 Year
  Sex: Female

DRUGS (6)
  1. ZYPREXA [Suspect]
     Dosage: UNK, UNKNOWN
  2. ZYPREXA [Interacting]
     Dosage: 10 MG, X 30 = 300 MG
  3. CHLORPROMAZINE [Interacting]
     Dosage: UNK, UNKNOWN
  4. CHLORPROMAZINE [Interacting]
     Dosage: 100 MG, X 7 = 700 MG
  5. ESCITALOPRAM [Interacting]
     Dosage: UNK, UNKNOWN
  6. ANTIBIOTICS [Concomitant]
     Indication: PNEUMONIA ASPIRATION
     Dosage: UNK, UNKNOWN
     Route: 042

REACTIONS (5)
  - DRUG INTERACTION [None]
  - INTENTIONAL OVERDOSE [None]
  - NEUROLEPTIC MALIGNANT SYNDROME [None]
  - PNEUMONIA ASPIRATION [None]
  - SOMNOLENCE [None]
